FAERS Safety Report 15823415 (Version 3)
Quarter: 2019Q1

REPORT INFORMATION
  Report Type: Spontaneous
  Country: ES (occurrence: ES)
  Receive Date: 20190114
  Receipt Date: 20190319
  Transmission Date: 20190417
  Serious: Yes (Hospitalization, Other)
  Sender: FDA-Public Use
  Company Number: ES-ELI_LILLY_AND_COMPANY-ES201901004396

PATIENT
  Age: 45 Year
  Sex: Male

DRUGS (3)
  1. IBUPROFEN. [Concomitant]
     Active Substance: IBUPROFEN
     Indication: ISCHAEMIC HEART DISEASE PROPHYLAXIS
     Dosage: 600 MG, OTHER (EVERY 8 HOURS)
     Route: 065
  2. TALTZ [Suspect]
     Active Substance: IXEKIZUMAB
     Indication: PSORIASIS
     Dosage: UNK, UNKNOWN
     Route: 065
     Dates: start: 201710
  3. COLCHICINE. [Concomitant]
     Active Substance: COLCHICINE
     Indication: ISCHAEMIC HEART DISEASE PROPHYLAXIS
     Dosage: 0.5 MG, BID
     Route: 065

REACTIONS (6)
  - Pneumonia [Unknown]
  - Nasopharyngitis [Unknown]
  - Viral pericarditis [Unknown]
  - Hypertension [Unknown]
  - Cough [Unknown]
  - Gastrooesophageal reflux disease [Unknown]

NARRATIVE: CASE EVENT DATE: 20190104
